FAERS Safety Report 10018364 (Version 1)
Quarter: 2014Q1

REPORT INFORMATION
  Report Type: Spontaneous
  Country: US (occurrence: None)
  Receive Date: 20140312
  Receipt Date: 20140312
  Transmission Date: 20141002
  Serious: Yes (Death)
  Sender: FDA-Public Use
  Company Number: UTC-045534

PATIENT
  Age: 54 Year
  Sex: Male
  Weight: 81.81 kg

DRUGS (3)
  1. TYVASO [Suspect]
  2. COUMADIN [Concomitant]
  3. REVATIO [Concomitant]

REACTIONS (1)
  - Death [None]
